FAERS Safety Report 7304077-5 (Version None)
Quarter: 2011Q1

REPORT INFORMATION
  Report Type: 
  Country: None (occurrence: None)
  Receive Date: 20110221
  Receipt Date: 20110209
  Transmission Date: 20110831
  Serious: Yes (Hospitalization)
  Sender: FDA-Public Use
  Company Number: PHHY2011US09406

PATIENT
  Sex: Female

DRUGS (11)
  1. LEXAPRO [Concomitant]
     Dosage: 20 MG, QD
     Route: 048
  2. MIRALAX [Concomitant]
     Dosage: DAILY
     Route: 048
  3. CALTRATE +D [Concomitant]
     Dosage: UNK
     Route: 048
  4. PRILOSEC [Concomitant]
     Dosage: UNK
  5. MOBIC [Concomitant]
     Dosage: 15 MG, QD
  6. VITAMIN D [Concomitant]
     Dosage: 50000 UNITS BY MOUTH
  7. RECLAST [Suspect]
     Dosage: 5 MG/100 ML YEARLY
  8. HYDROCHLOROTHIAZIDE [Concomitant]
     Dosage: UNK
  9. LIPITOR [Concomitant]
     Dosage: UNK
  10. MULTIVITAMINS PLUS IRON [Concomitant]
     Dosage: UNK
  11. CLONIDINE [Concomitant]
     Dosage: 0.5 DAILY

REACTIONS (10)
  - HEADACHE [None]
  - DEHYDRATION [None]
  - ELECTROLYTE IMBALANCE [None]
  - ABDOMINAL PAIN [None]
  - VOMITING [None]
  - DIARRHOEA [None]
  - HYPOKALAEMIA [None]
  - ASTHENIA [None]
  - NAUSEA [None]
  - HYPOCALCAEMIA [None]
